FAERS Safety Report 16681349 (Version 1)
Quarter: 2019Q3

REPORT INFORMATION
  Report Type: Spontaneous
  Country: NL (occurrence: NL)
  Receive Date: 20190808
  Receipt Date: 20190808
  Transmission Date: 20191004
  Serious: Yes (Other)
  Sender: FDA-Public Use
  Company Number: NL-AUROBINDO-AUR-APL-2019-046253

PATIENT

DRUGS (1)
  1. CARVEDILOL FILM-COATED TABLETS 6.25MG [Suspect]
     Active Substance: CARVEDILOL
     Indication: HYPERTENSION
     Dosage: 6 MILLIGRAM, TWO TIMES A DAY,2XPER DAG 1 STUK
     Route: 048
     Dates: start: 201905

REACTIONS (1)
  - Syncope [Unknown]

NARRATIVE: CASE EVENT DATE: 20190504
